FAERS Safety Report 19106256 (Version 1)
Quarter: 2021Q2

REPORT INFORMATION
  Report Type: Spontaneous
  Country: JP (occurrence: JP)
  Receive Date: 20210407
  Receipt Date: 20210407
  Transmission Date: 20210717
  Serious: Yes (Death, Other)
  Sender: FDA-Public Use
  Company Number: JP-FERAPHARMA-2021-JP-000157

PATIENT
  Age: 63 Year
  Sex: Male

DRUGS (4)
  1. DEXAMETHASONE (NON?SPECIFIC) [Suspect]
     Active Substance: DEXAMETHASONE
     Indication: BLASTIC PLASMACYTOID DENDRITIC CELL NEOPLASIA
     Dosage: 30 MG DAILY
  2. ETOPOSIDE. [Suspect]
     Active Substance: ETOPOSIDE
     Indication: BLASTIC PLASMACYTOID DENDRITIC CELL NEOPLASIA
     Dosage: 70 MG/SQUARE?METER
  3. L?ASPARAGINASE [Suspect]
     Active Substance: ASPARAGINASE
     Indication: BLASTIC PLASMACYTOID DENDRITIC CELL NEOPLASIA
     Dosage: 4000 U/SQUARE?METER
  4. IFOSFAMIDE. [Suspect]
     Active Substance: IFOSFAMIDE
     Indication: BLASTIC PLASMACYTOID DENDRITIC CELL NEOPLASIA
     Dosage: 1050 MG/SQUARE?METER

REACTIONS (1)
  - Tumour lysis syndrome [Fatal]
